FAERS Safety Report 6918213-3 (Version None)
Quarter: 2010Q3

REPORT INFORMATION
  Report Type: 
  Country: None (occurrence: None)
  Receive Date: 20100806
  Receipt Date: 20100730
  Transmission Date: 20110219
  Serious: Yes (Hospitalization)
  Sender: FDA-Public Use
  Company Number: 2010SP014788

PATIENT
  Age: 27 Year
  Sex: Female
  Weight: 88.905 kg

DRUGS (1)
  1. NUVARING [Suspect]
     Indication: CONTRACEPTION
     Dates: start: 20080101, end: 20080305

REACTIONS (6)
  - DEPRESSION [None]
  - HYPOAESTHESIA [None]
  - INJURY [None]
  - OVARIAN CYST [None]
  - PAIN [None]
  - PULMONARY EMBOLISM [None]
